FAERS Safety Report 8163813 (Version 5)
Quarter: 2012Q4

REPORT INFORMATION
  Report Type: 
  Country: US (occurrence: US)
  Receive Date: 20110930
  Receipt Date: 20121231
  Transmission Date: 20130627
  Serious: Yes (Hospitalization, Disabling, Other)
  Sender: FDA-Public Use
  Company Number: US-009507513-1109USA03245

PATIENT

DRUGS (4)
  1. FOSAMAX [Suspect]
     Indication: OSTEOPENIA
     Dosage: 10 mg, qd
     Route: 048
     Dates: start: 1996
  2. FOSAMAX [Suspect]
     Indication: OSTEOPOROSIS
     Dosage: 70 mg, UNK
     Route: 048
     Dates: start: 2000, end: 20080927
  3. FOSAMAX [Suspect]
     Indication: OSTEOPENIA
     Dosage: 70 mg, UNK
     Route: 048
     Dates: start: 20081028, end: 20090721
  4. FOSAMAX [Suspect]
     Indication: PROPHYLAXIS

REACTIONS (41)
  - Neoplasm malignant [Unknown]
  - Fall [Unknown]
  - Adverse event [Unknown]
  - Appendix disorder [Unknown]
  - Lung infiltration [Unknown]
  - Pulmonary mass [Unknown]
  - Pneumonia [Unknown]
  - Systemic inflammatory response syndrome [Unknown]
  - Renal failure acute [Unknown]
  - Decreased appetite [Unknown]
  - Lactic acidosis [Unknown]
  - Normochromic normocytic anaemia [Unknown]
  - Accelerated hypertension [Unknown]
  - Stress [Unknown]
  - Hypotension [Unknown]
  - Femur fracture [Not Recovered/Not Resolved]
  - Abdominal pain [Unknown]
  - Nausea [Unknown]
  - Dental caries [Unknown]
  - Mouth cyst [Unknown]
  - Hypertension [Unknown]
  - Hypercholesterolaemia [Unknown]
  - Dermatitis allergic [Unknown]
  - Arthritis [Unknown]
  - Cyst [Unknown]
  - Cataract [Unknown]
  - Hiatus hernia [Unknown]
  - Oestrogen deficiency [Unknown]
  - Spinal osteoarthritis [Not Recovered/Not Resolved]
  - Osteoarthritis [Unknown]
  - Hyperlipidaemia [Unknown]
  - Swelling [Unknown]
  - Adverse drug reaction [Unknown]
  - Bone density decreased [Unknown]
  - Mass [Unknown]
  - Gastrooesophageal reflux disease [Not Recovered/Not Resolved]
  - Drug hypersensitivity [Unknown]
  - Back pain [Not Recovered/Not Resolved]
  - Blood calcium decreased [Unknown]
  - Oedema peripheral [Unknown]
  - Drug ineffective [Unknown]
